FAERS Safety Report 23954225 (Version 1)
Quarter: 2024Q2

REPORT INFORMATION
  Report Type: Spontaneous
  Country: FR (occurrence: FR)
  Receive Date: 20240609
  Receipt Date: 20240609
  Transmission Date: 20240715
  Serious: Yes (Other)
  Sender: FDA-Public Use
  Company Number: None

PATIENT
  Age: 48 Year
  Sex: Male
  Weight: 80 kg

DRUGS (6)
  1. REMICADE [Suspect]
     Active Substance: INFLIXIMAB
     Indication: Psoriasis
     Dosage: C3
     Route: 041
     Dates: start: 20240412
  2. TIAPRIDE HYDROCHLORIDE [Concomitant]
     Active Substance: TIAPRIDE HYDROCHLORIDE
     Indication: Agitation
     Route: 048
     Dates: start: 202401
  3. QUETIAPINE [Concomitant]
     Active Substance: QUETIAPINE
     Indication: Mixed anxiety and depressive disorder
     Route: 048
     Dates: start: 202401
  4. OXAZEPAM [Concomitant]
     Active Substance: OXAZEPAM
     Route: 065
  5. VALPROATE DE SODIUM MYLAN [Concomitant]
  6. ZOPICLONE [Concomitant]
     Active Substance: ZOPICLONE
     Route: 065

REACTIONS (2)
  - Hypertriglyceridaemia [Not Recovered/Not Resolved]
  - Hepatic cytolysis [Not Recovered/Not Resolved]

NARRATIVE: CASE EVENT DATE: 20240516
